FAERS Safety Report 4479407-2 (Version None)
Quarter: 2004Q4

REPORT INFORMATION
  Report Type: 
  Country: None (occurrence: None)
  Receive Date: 20041015
  Receipt Date: 20040929
  Transmission Date: 20050328
  Serious: Yes (Other)
  Sender: FDA-Public Use
  Company Number: 2004236462AU

PATIENT
  Sex: Female

DRUGS (2)
  1. XANAX [Suspect]
     Indication: PANIC ATTACK
     Dosage: ORAL
     Route: 048
  2. INDAPAMIDE [Concomitant]

REACTIONS (3)
  - CONSTIPATION [None]
  - HEPATIC STEATOSIS [None]
  - URINARY TRACT INFECTION [None]
